FAERS Safety Report 5626355-8 (Version None)
Quarter: 2008Q1

REPORT INFORMATION
  Report Type: 
  Country: None (occurrence: None)
  Receive Date: 20080213
  Receipt Date: 20080213
  Transmission Date: 20080703
  Serious: Yes (Hospitalization)
  Sender: FDA-Public Use
  Company Number: None

PATIENT
  Age: 32 Year
  Sex: Female
  Weight: 77.1115 kg

DRUGS (9)
  1. HUMIRA [Suspect]
     Indication: CROHN'S DISEASE
     Dosage: 40MG EVERY WEEK SQ
     Route: 058
     Dates: start: 20071011, end: 20080122
  2. MERCAPTOPURINE [Concomitant]
  3. MUCINEX [Concomitant]
  4. PRILOSEC [Concomitant]
  5. SINGULAIR [Concomitant]
  6. MULTI-VITAMIN [Concomitant]
  7. CELEXA [Concomitant]
  8. PREDNISONE TAB [Concomitant]
  9. PENTASA [Concomitant]

REACTIONS (1)
  - GUILLAIN-BARRE SYNDROME [None]
